FAERS Safety Report 8789745 (Version 1)
Quarter: 2012Q4

REPORT INFORMATION
  Report Type: Spontaneous
  Country: AN (occurrence: None)
  Receive Date: 20120906
  Receipt Date: 20120906
  Transmission Date: 20130627
  Serious: Yes (Other)
  Sender: FDA-Public Use
  Company Number: 2012AP002767

PATIENT
  Age: 12 Year
  Sex: Female

DRUGS (1)
  1. VALPROIC ACID [Suspect]
     Indication: FOCAL EPILEPSY

REACTIONS (8)
  - Psychiatric symptom [None]
  - Tachyphrenia [None]
  - Negativism [None]
  - Agitation [None]
  - Hallucination, auditory [None]
  - Hallucination, visual [None]
  - Withdrawal syndrome [None]
  - Menorrhagia [None]
